FAERS Safety Report 4527363-0 (Version None)
Quarter: 2004Q4

REPORT INFORMATION
  Report Type: 
  Country: None (occurrence: None)
  Receive Date: 20041214
  Receipt Date: 20041214
  Transmission Date: 20050328
  Serious: Yes (Life-Threatening, Hospitalization)
  Sender: FDA-Public Use
  Company Number: None

PATIENT
  Age: 69 Year
  Sex: Female
  Weight: 63 kg

DRUGS (1)
  1. CETACAINE SPRAY              CETYLITE INDUSTRIES [Suspect]
     Indication: ECHOCARDIOGRAM
     Dosage: 1-2 SPRAYS   ONCE   OROPHARING
     Route: 049
     Dates: start: 20041206, end: 20041206

REACTIONS (2)
  - BLOOD METHAEMOGLOBIN PRESENT [None]
  - DYSPNOEA [None]
